FAERS Safety Report 16307175 (Version 3)
Quarter: 2019Q3

REPORT INFORMATION
  Report Type: Report from Study
  Country: CA (occurrence: CA)
  Receive Date: 20190514
  Receipt Date: 20190925
  Transmission Date: 20191004
  Serious: Yes (Death, Other)
  Sender: FDA-Public Use
  Company Number: CA-BRISTOL-MYERS SQUIBB COMPANY-BMS-2019-046093

PATIENT
  Sex: Female

DRUGS (2)
  1. NIVOLUMAB [Suspect]
     Active Substance: NIVOLUMAB
     Indication: METASTATIC RENAL CELL CARCINOMA
     Dosage: 274.5 MILLIGRAM, Q2WK
     Route: 042
     Dates: start: 20160919
  2. NIVOLUMAB [Suspect]
     Active Substance: NIVOLUMAB
     Indication: PRODUCT USED FOR UNKNOWN INDICATION
     Dosage: 273 MILLIGRAM
     Route: 042
     Dates: start: 20160929

REACTIONS (3)
  - Malignant neoplasm progression [Fatal]
  - Pulmonary embolism [Unknown]
  - Deep vein thrombosis [Unknown]
